FAERS Safety Report 5999582-8 (Version None)
Quarter: 2008Q4

REPORT INFORMATION
  Report Type: 
  Country: None (occurrence: None)
  Receive Date: 20081211
  Receipt Date: 20081211
  Transmission Date: 20090506
  Serious: Yes (Life-Threatening)
  Sender: FDA-Public Use
  Company Number: None

PATIENT
  Age: 39 Year
  Sex: Female
  Weight: 77.1115 kg

DRUGS (5)
  1. DICLOFENAC SODIUM [Suspect]
     Indication: BUNION OPERATION
     Dosage: 75 MG TWICE DAILY ORALLY
     Route: 048
     Dates: start: 20081114, end: 20081202
  2. HYDROCODONE BITARTRATE + ACETAMINOPHEN [Concomitant]
  3. DIOVAN HCT TAB [Concomitant]
  4. VYTORIN [Concomitant]
  5. DEPO-PROVERA [Concomitant]

REACTIONS (1)
  - BLOOD PRESSURE INCREASED [None]
